FAERS Safety Report 4340528-6 (Version None)
Quarter: 2004Q2

REPORT INFORMATION
  Report Type: 
  Country: None (occurrence: None)
  Receive Date: 20040414
  Receipt Date: 20040402
  Transmission Date: 20050107
  Serious: Yes (Death, Hospitalization)
  Sender: FDA-Public Use
  Company Number: UK071407

PATIENT
  Sex: Male

DRUGS (6)
  1. NEULASTA [Suspect]
     Indication: CHEMOTHERAPY
     Dosage: 6 MG, 1 IN 1 AS NECESSARY, SC
     Route: 058
     Dates: start: 20040101
  2. CYCLOPHOSPHAMIDE [Concomitant]
  3. PREDNISOLONE [Concomitant]
  4. DOXORUBICIN HCL [Concomitant]
  5. VINCRISTINE SULFATE [Concomitant]
  6. RITUXIMAB [Concomitant]

REACTIONS (5)
  - CHEST PAIN [None]
  - GENERAL PHYSICAL HEALTH DETERIORATION [None]
  - INFECTION [None]
  - MULTI-ORGAN FAILURE [None]
  - SEPTIC SHOCK [None]
